FAERS Safety Report 15361058 (Version 1)
Quarter: 2018Q3

REPORT INFORMATION
  Report Type: Spontaneous
  Country: US (occurrence: US)
  Receive Date: 20180907
  Receipt Date: 20180907
  Transmission Date: 20181010
  Serious: No
  Sender: FDA-Public Use
  Company Number: US-SA-2018SA250072

PATIENT
  Age: 44 Year
  Sex: Female
  Weight: 63 kg

DRUGS (1)
  1. FABRAZYME [Suspect]
     Active Substance: AGALSIDASE BETA
     Dosage: 0.95 MG/KG, QOW
     Route: 041
     Dates: start: 201606, end: 201808

REACTIONS (4)
  - Chest pain [Unknown]
  - Dizziness [Unknown]
  - Palpitations [Unknown]
  - Fatigue [Unknown]

NARRATIVE: CASE EVENT DATE: 201808
